FAERS Safety Report 4431082-9 (Version None)
Quarter: 2004Q3

REPORT INFORMATION
  Report Type: 
  Country: None (occurrence: None)
  Receive Date: 20040820
  Receipt Date: 20040820
  Transmission Date: 20050211
  Serious: Yes (Hospitalization)
  Sender: FDA-Public Use
  Company Number: None

PATIENT
  Age: 58 Year
  Sex: Male
  Weight: 68.0396 kg

DRUGS (5)
  1. ETOPOSIDE [Suspect]
     Indication: SMALL CELL LUNG CANCER STAGE UNSPECIFIED
     Dosage: SEE IMAGE
     Dates: start: 20020308, end: 20020309
  2. ETOPOSIDE [Suspect]
     Indication: SMALL CELL LUNG CANCER STAGE UNSPECIFIED
     Dosage: SEE IMAGE
     Dates: start: 20020307
  3. .. [Concomitant]
  4. CISPLATIN [Suspect]
     Indication: SMALL CELL LUNG CANCER STAGE UNSPECIFIED
     Dosage: 40MG/M2 Q 3 WKS
     Dates: start: 20020307
  5. RADIATION THERAPY [Concomitant]

REACTIONS (5)
  - CANDIDIASIS [None]
  - NAUSEA [None]
  - NON-CARDIAC CHEST PAIN [None]
  - ODYNOPHAGIA [None]
  - VOMITING [None]
